FAERS Safety Report 7298857-2 (Version None)
Quarter: 2011Q1

REPORT INFORMATION
  Report Type: 
  Country: None (occurrence: None)
  Receive Date: 20110217
  Receipt Date: 20100209
  Transmission Date: 20110831
  Serious: No
  Sender: FDA-Public Use
  Company Number: US-PFIZER INC-2010017121

PATIENT
  Age: 69 Year
  Sex: Male

DRUGS (2)
  1. COVERA-HS [Suspect]
     Dosage: UNK
  2. CALAN [Suspect]
     Dosage: UNK

REACTIONS (1)
  - HYPERTENSION [None]
